FAERS Safety Report 15571032 (Version 3)
Quarter: 2018Q4

REPORT INFORMATION
  Report Type: Spontaneous
  Country: US (occurrence: US)
  Receive Date: 20181031
  Receipt Date: 20181115
  Transmission Date: 20190205
  Serious: No
  Sender: FDA-Public Use
  Company Number: US-PFIZER INC-2017142428

PATIENT
  Age: 30 Year
  Sex: Female
  Weight: 63.49 kg

DRUGS (2)
  1. LYRICA [Suspect]
     Active Substance: PREGABALIN
     Indication: NEUROMYELITIS OPTICA SPECTRUM DISORDER
  2. LYRICA [Suspect]
     Active Substance: PREGABALIN
     Indication: NEURALGIA
     Dosage: 75 MG, 3X/DAY
     Route: 048
     Dates: start: 2012

REACTIONS (6)
  - Insomnia [Unknown]
  - Arthralgia [Unknown]
  - Withdrawal syndrome [Unknown]
  - Diarrhoea [Unknown]
  - Eating disorder [Unknown]
  - Malaise [Unknown]
